FAERS Safety Report 16400521 (Version 2)
Quarter: 2021Q1

REPORT INFORMATION
  Report Type: Other
  Country: CA (occurrence: CA)
  Receive Date: 20190606
  Receipt Date: 20210309
  Transmission Date: 20210419
  Serious: Yes (Other)
  Sender: FDA-Public Use
  Company Number: CA-OSMOTICA_PHARMACEUTICAL_US_LLC-POI0573201900220

PATIENT
  Age: 60 Year
  Sex: Female

DRUGS (29)
  1. FORADIL [Suspect]
     Active Substance: FORMOTEROL FUMARATE
     Indication: PRODUCT USED FOR UNKNOWN INDICATION
  2. MONTELUKAST [Suspect]
     Active Substance: MONTELUKAST SODIUM
     Indication: PRODUCT USED FOR UNKNOWN INDICATION
  3. COLACE [Suspect]
     Active Substance: DOCUSATE SODIUM
     Indication: PRODUCT USED FOR UNKNOWN INDICATION
  4. RIVAROXABAN [Suspect]
     Active Substance: RIVAROXABAN
     Indication: PRODUCT USED FOR UNKNOWN INDICATION
  5. METAMUCIL [Concomitant]
     Active Substance: PLANTAGO SEED
     Indication: PRODUCT USED FOR UNKNOWN INDICATION
  6. FLUCONAZOLE SODIUM CHLORIDE [Suspect]
     Active Substance: FLUCONAZOLE
     Indication: PRODUCT USED FOR UNKNOWN INDICATION
  7. FLUTICASONE PROPIONATE. [Suspect]
     Active Substance: FLUTICASONE PROPIONATE
     Indication: PRODUCT USED FOR UNKNOWN INDICATION
  8. NYSTATIN. [Suspect]
     Active Substance: NYSTATIN
     Indication: PRODUCT USED FOR UNKNOWN INDICATION
     Route: 048
  9. FLUTICASONE PROPIONATE. [Suspect]
     Active Substance: FLUTICASONE PROPIONATE
     Route: 065
  10. PROCTODAN?HC [Suspect]
     Active Substance: HYDROCORTISONE\PRAMOXINE\ZINC SULFATE
     Indication: PRODUCT USED FOR UNKNOWN INDICATION
  11. UMECLIDINIUM BROMIDE [Suspect]
     Active Substance: UMECLIDINIUM BROMIDE
     Indication: PRODUCT USED FOR UNKNOWN INDICATION
  12. ACTONEL [Suspect]
     Active Substance: RISEDRONATE SODIUM
     Indication: PRODUCT USED FOR UNKNOWN INDICATION
  13. AMOXICILLIN TRIHYDRATE,CLARITHROMYCIN,ESOMEPRAZOLE MAGNESIUM [Suspect]
     Active Substance: AMOXICILLIN\CLARITHROMYCIN\ESOMEPRAZOLE
     Indication: PRODUCT USED FOR UNKNOWN INDICATION
  14. PREDNISONE. [Suspect]
     Active Substance: PREDNISONE
     Indication: PRODUCT USED FOR UNKNOWN INDICATION
     Route: 065
  15. FORMOTEROL [Suspect]
     Active Substance: FORMOTEROL
     Indication: PRODUCT USED FOR UNKNOWN INDICATION
  16. HYDROCORTISONE ACETATE PRAMOXINE HYDROCHLORIDE ZINC SULFATE [Suspect]
     Active Substance: HYDROCORTISONE ACETATE\PRAMOXINE HYDROCHLORIDE\ZINC SULFATE
     Indication: PRODUCT USED FOR UNKNOWN INDICATION
  17. PNEUMOCOCCAL VACCINE POLYVALENT NOS [Concomitant]
     Active Substance: PNEUMOCOCCAL VACCINE POLYVALENT
     Indication: PRODUCT USED FOR UNKNOWN INDICATION
  18. BREO ELLIPTA [Suspect]
     Active Substance: FLUTICASONE FUROATE\VILANTEROL TRIFENATATE
     Indication: PRODUCT USED FOR UNKNOWN INDICATION
  19. VENTOLIN [Suspect]
     Active Substance: ALBUTEROL SULFATE
     Indication: PRODUCT USED FOR UNKNOWN INDICATION
  20. SALBUTAMOL [Suspect]
     Active Substance: ALBUTEROL
     Indication: PRODUCT USED FOR UNKNOWN INDICATION
  21. AIROMIR [Suspect]
     Active Substance: ALBUTEROL SULFATE
     Indication: PRODUCT USED FOR UNKNOWN INDICATION
  22. FORMOTEROL [Suspect]
     Active Substance: FORMOTEROL
     Indication: PRODUCT USED FOR UNKNOWN INDICATION
  23. FORMOTEROL [Suspect]
     Active Substance: FORMOTEROL
  24. ACETYLSALICYLIC ACID [Suspect]
     Active Substance: ASPIRIN
     Indication: PRODUCT USED FOR UNKNOWN INDICATION
  25. INFLUENZA VACCINE [Concomitant]
     Active Substance: INFLUENZA VIRUS VACCINE
     Indication: PRODUCT USED FOR UNKNOWN INDICATION
  26. PULMICORT TURBUHALER [Concomitant]
     Active Substance: BUDESONIDE
     Indication: SEASONAL ALLERGY
  27. OXYCODONE HCL CR [Suspect]
     Active Substance: OXYCODONE HYDROCHLORIDE
     Indication: PRODUCT USED FOR UNKNOWN INDICATION
  28. OXYNEO [Suspect]
     Active Substance: OXYCODONE
     Indication: PRODUCT USED FOR UNKNOWN INDICATION
  29. DIVIGEL [Suspect]
     Active Substance: ESTRADIOL
     Indication: PRODUCT USED FOR UNKNOWN INDICATION

REACTIONS (37)
  - Asthma [Not Recovered/Not Resolved]
  - Candida infection [Not Recovered/Not Resolved]
  - Disease recurrence [Not Recovered/Not Resolved]
  - Obstructive airways disorder [Not Recovered/Not Resolved]
  - Respiratory symptom [Not Recovered/Not Resolved]
  - Weight increased [Not Recovered/Not Resolved]
  - Abdominal discomfort [Not Recovered/Not Resolved]
  - Dyspnoea [Not Recovered/Not Resolved]
  - Female genital tract fistula [Not Recovered/Not Resolved]
  - Salpingo-oophorectomy unilateral [Not Recovered/Not Resolved]
  - Diverticulum [Not Recovered/Not Resolved]
  - Eczema [Not Recovered/Not Resolved]
  - Hiatus hernia [Not Recovered/Not Resolved]
  - Wheezing [Not Recovered/Not Resolved]
  - Chronic sinusitis [Not Recovered/Not Resolved]
  - Emphysema [Not Recovered/Not Resolved]
  - Deep vein thrombosis [Not Recovered/Not Resolved]
  - Cough [Not Recovered/Not Resolved]
  - Lower respiratory tract infection [Not Recovered/Not Resolved]
  - Sinusitis fungal [Not Recovered/Not Resolved]
  - Dyspnoea exertional [Not Recovered/Not Resolved]
  - Gastrooesophageal reflux disease [Not Recovered/Not Resolved]
  - Osteoporosis [Not Recovered/Not Resolved]
  - Sinusitis [Not Recovered/Not Resolved]
  - Tricuspid valve incompetence [Not Recovered/Not Resolved]
  - Embolism venous [Not Recovered/Not Resolved]
  - Iron deficiency anaemia [Not Recovered/Not Resolved]
  - Oedema peripheral [Not Recovered/Not Resolved]
  - Osteoarthritis [Not Recovered/Not Resolved]
  - Pulmonary embolism [Not Recovered/Not Resolved]
  - Chest discomfort [Not Recovered/Not Resolved]
  - Diastolic dysfunction [Not Recovered/Not Resolved]
  - Fungal infection [Not Recovered/Not Resolved]
  - Hysterectomy [Not Recovered/Not Resolved]
  - Nasal polyps [Not Recovered/Not Resolved]
  - Sleep apnoea syndrome [Not Recovered/Not Resolved]
  - Sputum increased [Not Recovered/Not Resolved]

NARRATIVE: CASE EVENT DATE: 2018
